FAERS Safety Report 5832869-8 (Version None)
Quarter: 2008Q3

REPORT INFORMATION
  Report Type: 
  Country: None (occurrence: None)
  Receive Date: 20080804
  Receipt Date: 20080723
  Transmission Date: 20090109
  Serious: Yes (Hospitalization)
  Sender: FDA-Public Use
  Company Number: AT-GENENTECH-265542

PATIENT
  Sex: Male

DRUGS (4)
  1. AVASTIN [Suspect]
     Indication: COLON NEOPLASM
     Dosage: 7.5 MG/KG, Q3W
     Route: 042
     Dates: start: 20080430, end: 20080709
  2. MARCUMAR [Suspect]
     Indication: PULMONARY EMBOLISM
     Dosage: UNK
     Dates: start: 20060614, end: 20080716
  3. OXALIPLATIN [Concomitant]
     Indication: DRUG USE FOR UNKNOWN INDICATION
     Dosage: UNK
     Dates: start: 20080401, end: 20080709
  4. XELODA [Concomitant]
     Indication: DRUG USE FOR UNKNOWN INDICATION
     Dosage: UNK
     Dates: start: 20080401, end: 20080709

REACTIONS (3)
  - ANAEMIA [None]
  - HAEMATOMA [None]
  - RIB FRACTURE [None]
